FAERS Safety Report 9138870 (Version 7)
Quarter: 2014Q2

REPORT INFORMATION
  Report Type: Spontaneous
  Country: US (occurrence: US)
  Receive Date: 20130305
  Receipt Date: 20140513
  Transmission Date: 20141212
  Serious: Yes (Hospitalization, Other)
  Sender: FDA-Public Use
  Company Number: US-PFIZER INC-2013074992

PATIENT
  Age: 57 Year
  Sex: Male
  Weight: 89.34 kg

DRUGS (12)
  1. SUTENT [Suspect]
     Indication: GASTROINTESTINAL STROMAL TUMOUR
     Dosage: 25 MG, EACH CYCLE
     Dates: start: 20130218
  2. SUTENT [Suspect]
     Dosage: 37.5 MG, DAILY CYCLIC
  3. SUTENT [Suspect]
     Dosage: 50 MG, DAILY CYCLIC
     Dates: start: 20130513, end: 201309
  4. LOVENOX [Concomitant]
     Indication: PULMONARY EMBOLISM
     Dosage: 120 MG, 1X/DAY
  5. AMBIEN [Concomitant]
     Dosage: UNK
  6. CELEXA [Concomitant]
     Dosage: UNK
  7. IRON [Concomitant]
     Dosage: UNK
  8. ANDROGEL [Concomitant]
     Dosage: UNK
  9. LORTAB [Concomitant]
     Dosage: UNK
  10. ZOFRAN [Concomitant]
     Dosage: UNK
  11. PHENERGAN [Concomitant]
     Dosage: UNK
  12. MAGIC MOUTHWASH [Concomitant]
     Dosage: UNK

REACTIONS (11)
  - Tooth abscess [Unknown]
  - Post procedural infection [Unknown]
  - Paraganglion neoplasm [Unknown]
  - Diarrhoea [Not Recovered/Not Resolved]
  - Arthralgia [Unknown]
  - Headache [Unknown]
  - Nausea [Unknown]
  - Glossodynia [Unknown]
  - Wound complication [Unknown]
  - Yellow skin [Unknown]
  - Toxicity to various agents [Unknown]
